FAERS Safety Report 12688226 (Version 1)
Quarter: 2016Q3

REPORT INFORMATION
  Report Type: Report from Study
  Country: TH (occurrence: TH)
  Receive Date: 20160826
  Receipt Date: 20160826
  Transmission Date: 20161109
  Serious: Yes (Other)
  Sender: FDA-Public Use
  Company Number: TH-CIPLA LTD.-2016TH17104

PATIENT

DRUGS (10)
  1. LAMIVUDINE. [Suspect]
     Active Substance: LAMIVUDINE
     Indication: HIV INFECTION
     Dosage: UNK
     Route: 065
  2. SIMVASTATIN. [Concomitant]
     Active Substance: SIMVASTATIN
     Indication: HYPERCHOLESTEROLAEMIA
     Dosage: 10 MG,QD, WEEK 48
     Route: 048
     Dates: start: 20120917
  3. LEVODOPA/BENSERAZINE [Concomitant]
     Dosage: UNK, TAB, BID (CM DOSE: 1-APR-2016)
     Route: 048
     Dates: start: 20120917
  4. FENOFIBRATE. [Concomitant]
     Active Substance: FENOFIBRATE
     Indication: HYPERTRIGLYCERIDAEMIA
     Dosage: 300 MG, QD, WEEK 0
     Route: 048
     Dates: start: 20111226
  5. ANGIOTENSIN CONVERTING ENZYME INHIBITOR [Concomitant]
     Active Substance: UNSPECIFIED INGREDIENT
     Indication: HYPERTENSION
     Dosage: 5 MG, QD
     Route: 048
  6. TENOFOVIR DISOPROXIL FUMARATE. [Suspect]
     Active Substance: TENOFOVIR DISOPROXIL FUMARATE
     Indication: HIV INFECTION
     Dosage: UNK
     Route: 065
  7. TRIHEXYPHENIDYL [Concomitant]
     Active Substance: TRIHEXYPHENIDYL
     Indication: PARKINSON^S DISEASE
     Dosage: 2 MG, BID
     Route: 048
     Dates: start: 20110315, end: 20120917
  8. LEVODOPA/BENSERAZINE [Concomitant]
     Indication: PARKINSON^S DISEASE
     Dosage: UNK, TAB, BID (CM DOSE: 1-FEB-2016)
     Route: 048
     Dates: start: 20110315, end: 20120917
  9. ATAZANAVIR/ RITONAVIR [Suspect]
     Active Substance: ATAZANAVIR\RITONAVIR
     Indication: HIV INFECTION
     Dosage: 300/100MG, QD
     Route: 048
  10. TRIHEXYPHENIDYL [Concomitant]
     Active Substance: TRIHEXYPHENIDYL
     Dosage: 2 MG,TID
     Route: 048
     Dates: start: 20120917

REACTIONS (1)
  - Renal tubular dysfunction [Not Recovered/Not Resolved]

NARRATIVE: CASE EVENT DATE: 20120806
